FAERS Safety Report 16246574 (Version 1)
Quarter: 2019Q2

REPORT INFORMATION
  Report Type: Spontaneous
  Country: FR (occurrence: FR)
  Receive Date: 20190427
  Receipt Date: 20190427
  Transmission Date: 20190711
  Serious: Yes (Death)
  Sender: FDA-Public Use
  Company Number: FR-TEVA-2019-FR-1042031

PATIENT
  Age: 48 Year
  Sex: Male
  Weight: 93 kg

DRUGS (3)
  1. PARACETAMOL [Concomitant]
     Active Substance: ACETAMINOPHEN
  2. IBUPROFENE [Suspect]
     Active Substance: IBUPROFEN
     Indication: INFLUENZA LIKE ILLNESS
     Route: 048
     Dates: start: 20190204, end: 20190211
  3. AMOXICILLINE [Concomitant]
     Active Substance: AMOXICILLIN

REACTIONS (6)
  - Acute respiratory distress syndrome [Fatal]
  - Pneumonia necrotising [Fatal]
  - Coma [Fatal]
  - Brain abscess [Fatal]
  - Septic shock [Fatal]
  - Staphylococcal infection [Fatal]

NARRATIVE: CASE EVENT DATE: 20190211
